FAERS Safety Report 4879072-6 (Version None)
Quarter: 2005Q4

REPORT INFORMATION
  Report Type: 
  Country: None (occurrence: None)
  Receive Date: 20051212
  Receipt Date: 20050608
  Transmission Date: 20060501
  Serious: No
  Sender: FDA-Public Use
  Company Number: 05P-163-0302606-00

PATIENT
  Sex: Male

DRUGS (1)
  1. BIAXIN [Suspect]

REACTIONS (1)
  - HEPATIC FAILURE [None]
